FAERS Safety Report 22170380 (Version 1)
Quarter: 2023Q2

REPORT INFORMATION
  Report Type: Spontaneous
  Country: DE (occurrence: DE)
  Receive Date: 20230404
  Receipt Date: 20230404
  Transmission Date: 20230721
  Serious: Yes (Other)
  Sender: FDA-Public Use
  Company Number: DE-009507513-2303DEU008386

PATIENT
  Age: 35 Year
  Sex: Female

DRUGS (5)
  1. PACLITAXEL [Suspect]
     Active Substance: PACLITAXEL
     Indication: Triple negative breast cancer
     Dosage: UNK
  2. PACLITAXEL [Suspect]
     Active Substance: PACLITAXEL
     Indication: Triple negative breast cancer
     Dosage: WEEKLY; 12 CYCLES, CYCLICAL
     Dates: start: 202209
  3. CARBOPLATIN [Suspect]
     Active Substance: CARBOPLATIN
     Indication: Triple negative breast cancer
     Dosage: CYCLICAL
     Dates: start: 202209
  4. PEMBROLIZUMAB [Suspect]
     Active Substance: PEMBROLIZUMAB
     Indication: Triple negative breast cancer
     Dosage: 4 CYCLES, CYCLICAL
  5. EPIRUBICIN [Suspect]
     Active Substance: EPIRUBICIN
     Indication: Triple negative breast cancer
     Dosage: 4 CYCLES, CYCLICAL

REACTIONS (3)
  - Drug hypersensitivity [Unknown]
  - Immune-mediated thyroiditis [Unknown]
  - Vascular device infection [Unknown]

NARRATIVE: CASE EVENT DATE: 20220101
